FAERS Safety Report 4745942-2 (Version None)
Quarter: 2005Q3

REPORT INFORMATION
  Report Type: 
  Country: None (occurrence: None)
  Receive Date: 20050816
  Receipt Date: 20050805
  Transmission Date: 20060218
  Serious: Yes (Other)
  Sender: FDA-Public Use
  Company Number: FR-GLAXOSMITHKLINE-B0389998A

PATIENT
  Age: 25 Year
  Sex: Female

DRUGS (1)
  1. LAMICTAL [Suspect]
     Route: 048
     Dates: start: 20041001

REACTIONS (3)
  - DRUG INEFFECTIVE [None]
  - DYSPHEMIA [None]
  - MYOCLONIC EPILEPSY [None]
